FAERS Safety Report 8139165-7 (Version None)
Quarter: 2012Q1

REPORT INFORMATION
  Report Type: 
  Country: None (occurrence: None)
  Receive Date: 20120215
  Receipt Date: 20120208
  Transmission Date: 20120608
  Serious: Yes (Hospitalization)
  Sender: FDA-Public Use
  Company Number: US-BAYER-2011-102119

PATIENT
  Age: 33 Year
  Sex: Female
  Weight: 61 kg

DRUGS (11)
  1. MULTI-VITAMIN [Concomitant]
     Dosage: UNK UNK, QD
  2. XANAX [Concomitant]
     Dosage: 0.5 MG, PRN
     Route: 048
     Dates: start: 20091023
  3. PRILOSEC [Concomitant]
  4. ACETAMINOPHEN [Concomitant]
  5. COLACE [Concomitant]
  6. AMBIEN [Concomitant]
  7. YAZ [Suspect]
     Indication: CONTRACEPTION
     Dosage: UNK
     Dates: start: 20040101, end: 20091101
  8. SENNA [Concomitant]
  9. DROSPIRENONE AND ETHINYL ESTRADIOL [Suspect]
     Indication: CONTRACEPTION
     Dosage: UNK
     Dates: start: 20040101, end: 20091101
  10. YASMIN [Suspect]
     Indication: CONTRACEPTION
     Dosage: UNK
     Dates: start: 20040101, end: 20091101
  11. BENADRYL [Concomitant]

REACTIONS (3)
  - DEEP VEIN THROMBOSIS [None]
  - INJURY [None]
  - PULMONARY EMBOLISM [None]
